FAERS Safety Report 25759911 (Version 1)
Quarter: 2025Q3

REPORT INFORMATION
  Report Type: Spontaneous
  Country: US (occurrence: US)
  Receive Date: 20250904
  Receipt Date: 20250904
  Transmission Date: 20251021
  Serious: No
  Sender: MACLEODS
  Company Number: US-MACLEODS PHARMA-MAC2025054974

PATIENT
  Age: 51 Year
  Sex: Female

DRUGS (1)
  1. TRIAMCINOLONE [Suspect]
     Active Substance: TRIAMCINOLONE
     Indication: Product used for unknown indication
     Dosage: PATIENT^S DOSE IS TO APPLY AS DIRECTED TWICE DAILY, NDC NUMBER:16714-986-03
     Route: 061
     Dates: start: 20250818

REACTIONS (2)
  - Product dose omission issue [Unknown]
  - Product physical consistency issue [Unknown]
